FAERS Safety Report 7527956-2 (Version None)
Quarter: 2011Q2

REPORT INFORMATION
  Report Type: 
  Country: None (occurrence: None)
  Receive Date: 20110531
  Receipt Date: 20110519
  Transmission Date: 20111010
  Serious: Yes (Life-Threatening, Hospitalization)
  Sender: FDA-Public Use
  Company Number: 2011C-P00094

PATIENT
  Age: 43 Year
  Sex: Female

DRUGS (10)
  1. KETOPROFEN [Suspect]
     Dosage: IV
     Route: 042
     Dates: start: 20110210
  2. SUFENTA PRESERVATIVE FREE [Suspect]
     Dosage: IV
     Dates: start: 20110210
  3. CEFAZOLIN SODIUM [Suspect]
     Dosage: IV
     Route: 042
     Dates: start: 20110212
  4. ACETAMINOPHEN [Suspect]
     Dosage: IV
     Route: 042
     Dates: start: 20110210
  5. MIDAZOLAM HCL [Suspect]
     Dosage: IV
     Route: 042
     Dates: start: 20110220
  6. BLEU PATENTE V GUERBET [Suspect]
     Dosage: IV
     Dates: start: 20110210
  7. DIOSMIN [Concomitant]
  8. ACUPAN [Suspect]
     Dosage: IV
     Route: 042
     Dates: start: 20110210
  9. LYSANIXA [Concomitant]
  10. DIPRIVAN [Suspect]
     Dosage: IV
     Route: 042
     Dates: start: 20110210

REACTIONS (1)
  - ANAPHYLACTIC SHOCK [None]
